FAERS Safety Report 17675564 (Version 1)
Quarter: 2020Q2

REPORT INFORMATION
  Report Type: Spontaneous
  Country: US (occurrence: US)
  Receive Date: 20200416
  Receipt Date: 20200416
  Transmission Date: 20200714
  Serious: No
  Sender: FDA-Public Use
  Company Number: US-TEVA-2020-US-1223438

PATIENT

DRUGS (1)
  1. AJOVY [Suspect]
     Active Substance: FREMANEZUMAB-VFRM
     Dosage: FORM STRENGTH: 225 MG / 1.5 ML, SINCE JUNE
     Route: 065
     Dates: end: 202004

REACTIONS (1)
  - Drug ineffective [Unknown]
